FAERS Safety Report 7907953-5 (Version None)
Quarter: 2011Q4

REPORT INFORMATION
  Report Type: 
  Country: None (occurrence: None)
  Receive Date: 20111110
  Receipt Date: 20111031
  Transmission Date: 20120403
  Serious: Yes (Hospitalization, Other)
  Sender: FDA-Public Use
  Company Number: US-MPIJNJ-2011-05010

PATIENT
  Sex: Male
  Weight: 99.773 kg

DRUGS (3)
  1. ASPIRIN W/DIPYRIDAMOLE [Concomitant]
     Indication: PRODUCT USED FOR UNKNOWN INDICATION
     Dosage: 0.651 UNK, BID
     Route: 048
     Dates: start: 20110613
  2. VELCADE [Suspect]
     Indication: MULTIPLE MYELOMA
     Dosage: 0.651 MG/M2, CYCLIC
     Route: 042
     Dates: start: 20101230, end: 20110602
  3. DECADRON [Suspect]
     Indication: MULTIPLE MYELOMA
     Dosage: 40 MG, CYCLIC
     Route: 042
     Dates: start: 20101230, end: 20110602

REACTIONS (5)
  - HYPOPROTEINAEMIA [None]
  - GENERALISED OEDEMA [None]
  - RESPIRATORY FAILURE [None]
  - CHRONIC OBSTRUCTIVE PULMONARY DISEASE [None]
  - PULMONARY OEDEMA [None]
